FAERS Safety Report 16765476 (Version 1)
Quarter: 2019Q3

REPORT INFORMATION
  Report Type: Spontaneous
  Country: IT (occurrence: IT)
  Receive Date: 20190903
  Receipt Date: 20190903
  Transmission Date: 20191005
  Serious: Yes (Hospitalization, Other)
  Sender: FDA-Public Use
  Company Number: IT-SA-2019SA238791

PATIENT
  Age: 39 Year
  Sex: Female

DRUGS (2)
  1. ENTECAVIR. [Concomitant]
     Active Substance: ENTECAVIR
     Dosage: 0.5 MG, QD
     Route: 065
  2. LEFLUNOMIDE. [Suspect]
     Active Substance: LEFLUNOMIDE
     Dosage: 20 MG, QD
     Route: 065

REACTIONS (4)
  - Pruritus [Recovering/Resolving]
  - Fatigue [Recovering/Resolving]
  - Hepatitis E [Recovering/Resolving]
  - Hepatic enzyme increased [Recovering/Resolving]
